FAERS Safety Report 9339189 (Version 1)
Quarter: 2013Q2

REPORT INFORMATION
  Report Type: Spontaneous
  Country: US (occurrence: US)
  Receive Date: 20130610
  Receipt Date: 20130610
  Transmission Date: 20140414
  Serious: No
  Sender: FDA-Public Use
  Company Number: US-PFIZER INC-2013170442

PATIENT
  Sex: Female

DRUGS (1)
  1. DEPO-PROVERA [Suspect]
     Indication: VAGINAL HAEMORRHAGE
     Dosage: UNK, ONCE EVERY TWO MONTHS
     Route: 030

REACTIONS (2)
  - Drug administered at inappropriate site [Unknown]
  - Injection site pain [Unknown]
